FAERS Safety Report 4345401-5 (Version None)
Quarter: 2004Q2

REPORT INFORMATION
  Report Type: 
  Country: None (occurrence: None)
  Receive Date: 20040421
  Receipt Date: 20040412
  Transmission Date: 20050107
  Serious: Yes (Other)
  Sender: FDA-Public Use
  Company Number: 2004209311BR

PATIENT
  Sex: Female

DRUGS (1)
  1. FRONTAL (ALPRAZOLAM) TABLET [Suspect]
     Indication: ANXIETY
     Dosage: 0.5MG/DAY, ORAL
     Route: 048
     Dates: start: 20031001

REACTIONS (4)
  - COMPLICATIONS OF MATERNAL EXPOSURE TO THERAPEUTIC DRUGS [None]
  - GENITAL DISCHARGE [None]
  - INTRA-UTERINE DEATH [None]
  - PREGNANCY [None]
